FAERS Safety Report 19287973 (Version 1)
Quarter: 2021Q2

REPORT INFORMATION
  Report Type: Spontaneous
  Country: FR (occurrence: FR)
  Receive Date: 20210521
  Receipt Date: 20210521
  Transmission Date: 20210717
  Serious: Yes (Hospitalization, Other)
  Sender: FDA-Public Use
  Company Number: FR-PURDUE-USA-2021-0262491

PATIENT
  Age: 69 Year
  Sex: Female

DRUGS (4)
  1. NON?PMN MORPHINE SULFATE [Suspect]
     Active Substance: MORPHINE SULFATE
     Indication: NEURALGIA
     Dosage: 400 MICROGRAM, QD
     Route: 037
  2. FLUINDIONE [Concomitant]
     Active Substance: FLUINDIONE
     Indication: PHLEBITIS
     Dosage: UNK
     Route: 065
  3. BACLOFEN. [Suspect]
     Active Substance: BACLOFEN
     Dosage: UNK
     Route: 037
     Dates: start: 2008
  4. BACLOFEN. [Suspect]
     Active Substance: BACLOFEN
     Indication: PARAPLEGIA
     Dosage: 300 MICROGRAM, QD
     Route: 037
     Dates: start: 2008

REACTIONS (4)
  - Beta haemolytic streptococcal infection [Recovered/Resolved]
  - Implant site extravasation [Recovered/Resolved]
  - Induration [Recovered/Resolved]
  - Meningitis bacterial [Recovered/Resolved]
